FAERS Safety Report 6375796-2 (Version None)
Quarter: 2009Q3

REPORT INFORMATION
  Report Type: 
  Country: None (occurrence: None)
  Receive Date: 20090924
  Receipt Date: 20090917
  Transmission Date: 20100115
  Serious: Yes (Hospitalization)
  Sender: FDA-Public Use
  Company Number: AU-SANOFI-SYNTHELABO-A01200905962

PATIENT
  Sex: Male

DRUGS (17)
  1. VYTORIN [Concomitant]
     Indication: DRUG USE FOR UNKNOWN INDICATION
     Dosage: UNK
     Route: 065
  2. METFORMIN HCL [Concomitant]
     Indication: DIABETES MELLITUS
     Dosage: UNK
     Route: 065
  3. THIAZIDE [Concomitant]
     Indication: DRUG USE FOR UNKNOWN INDICATION
     Dosage: UNK
     Route: 065
     Dates: start: 19810101
  4. TRIPRIM [Concomitant]
     Indication: DRUG USE FOR UNKNOWN INDICATION
     Route: 048
  5. DEPO-MEDROL [Concomitant]
     Indication: DRUG USE FOR UNKNOWN INDICATION
     Dosage: 40 MG/KG
     Route: 058
  6. DIAMICRON [Concomitant]
     Indication: DIABETES MELLITUS
     Route: 048
  7. CRESTOR [Concomitant]
     Indication: DRUG USE FOR UNKNOWN INDICATION
     Route: 048
     Dates: start: 19950101
  8. OSTEOEZE [Concomitant]
     Indication: OSTEOARTHRITIS
     Route: 048
  9. TRITACE [Concomitant]
     Indication: HYPERTENSION
     Route: 065
     Dates: start: 20060101
  10. TENORMIN [Concomitant]
     Indication: HYPERTENSION
     Route: 048
  11. PANAMAX [Concomitant]
     Indication: OSTEOARTHRITIS
     Route: 048
  12. NITROLINGUAL [Concomitant]
     Indication: ANGINA PECTORIS
     Route: 060
  13. AVANDIA [Concomitant]
     Indication: DIABETES MELLITUS
     Route: 065
  14. PLAVIX [Suspect]
     Indication: STENT PLACEMENT
     Route: 048
     Dates: start: 20001101
  15. PLAVIX [Suspect]
     Indication: ACUTE CORONARY SYNDROME
     Route: 048
     Dates: start: 20001101
  16. ASPIRIN [Concomitant]
     Indication: ANGINA PECTORIS
     Route: 048
  17. DITHIAZIDE [Concomitant]
     Indication: NEPHROLITHIASIS
     Route: 048

REACTIONS (2)
  - NEPHROLITHIASIS [None]
  - PROSTATE CANCER [None]
